FAERS Safety Report 14120702 (Version 2)
Quarter: 2017Q4

REPORT INFORMATION
  Report Type: Spontaneous
  Country: GB (occurrence: GB)
  Receive Date: 20171024
  Receipt Date: 20171026
  Transmission Date: 20180321
  Serious: Yes (Hospitalization, Other)
  Sender: FDA-Public Use
  Company Number: GB-PFIZER INC-2017451997

PATIENT
  Age: 52 Year
  Sex: Male

DRUGS (6)
  1. SUNITINIB MALATE. [Suspect]
     Active Substance: SUNITINIB MALATE
     Dosage: 37.5 MG, ONCE DAILY (2 WEEKS ON AND 1 WEEK OFF)
     Dates: start: 201404, end: 201509
  2. SUNITINIB MALATE. [Suspect]
     Active Substance: SUNITINIB MALATE
     Dosage: 50 MG, ONCE DAILY (4 WEEKS ON AND 2 WEEKS OFF)
     Dates: start: 201309, end: 201403
  3. SUNITINIB MALATE. [Suspect]
     Active Substance: SUNITINIB MALATE
     Dosage: 37.5 MG, ONCE DAILY (4 WEEKS ON AND 2 WEEKS OFF)
     Dates: start: 201403, end: 201404
  4. SUNITINIB MALATE. [Suspect]
     Active Substance: SUNITINIB MALATE
     Dosage: 37.5 MG, ONCE DAILY
     Dates: start: 201512, end: 201601
  5. SUNITINIB MALATE. [Suspect]
     Active Substance: SUNITINIB MALATE
     Dosage: 37.5 MG, (2 WEEKS ON AND 1 WEEK OFF)
     Dates: end: 201702
  6. SUNITINIB MALATE. [Suspect]
     Active Substance: SUNITINIB MALATE
     Dosage: 37.5 MG, (2 WEEKS ON AND 1 WEEK OFF)
     Dates: start: 201601, end: 201611

REACTIONS (21)
  - Gait inability [Not Recovered/Not Resolved]
  - Palmar-plantar erythrodysaesthesia syndrome [Not Recovered/Not Resolved]
  - Blood thyroid stimulating hormone decreased [Recovered/Resolved]
  - Pleuritic pain [Unknown]
  - Vomiting [Recovered/Resolved]
  - Diarrhoea [Unknown]
  - Cough [Unknown]
  - Respiratory disorder [Recovering/Resolving]
  - Pleural effusion [Not Recovered/Not Resolved]
  - Blood pressure increased [Not Recovered/Not Resolved]
  - Fatigue [Unknown]
  - Neoplasm progression [Unknown]
  - Paraesthesia oral [Unknown]
  - Dysgeusia [Unknown]
  - Lethargy [Unknown]
  - Muscle strain [Unknown]
  - Chest pain [Unknown]
  - Dyspnoea [Unknown]
  - Hypoventilation [Unknown]
  - Blood thyroid stimulating hormone increased [Not Recovered/Not Resolved]
  - Musculoskeletal pain [Not Recovered/Not Resolved]

NARRATIVE: CASE EVENT DATE: 201310
